FAERS Safety Report 7595007-X (Version None)
Quarter: 2011Q3

REPORT INFORMATION
  Report Type: 
  Country: None (occurrence: None)
  Receive Date: 20110707
  Receipt Date: 20110630
  Transmission Date: 20111222
  Serious: Yes (Hospitalization)
  Sender: FDA-Public Use
  Company Number: NL-MEDIMMUNE-MEDI-0012809

PATIENT
  Sex: Female
  Weight: 3.8 kg

DRUGS (4)
  1. FUROSEMIDE [Concomitant]
  2. SYNAGIS [Suspect]
     Route: 030
     Dates: start: 20110304, end: 20110304
  3. SYNAGIS [Suspect]
     Route: 030
     Dates: start: 20110203, end: 20110203
  4. ALODACTON [Concomitant]

REACTIONS (7)
  - CARDIAC FAILURE [None]
  - UNDERWEIGHT [None]
  - ASTHENIA [None]
  - PYREXIA [None]
  - MALAISE [None]
  - INFANTILE SPITTING UP [None]
  - VOMITING [None]
